FAERS Safety Report 6695099-6 (Version None)
Quarter: 2010Q2

REPORT INFORMATION
  Report Type: 
  Country: None (occurrence: None)
  Receive Date: 20100423
  Receipt Date: 20100419
  Transmission Date: 20101027
  Serious: Yes (Other)
  Sender: FDA-Public Use
  Company Number: PHHY2010CO24312

PATIENT
  Sex: Female

DRUGS (5)
  1. TRILEPTAL [Suspect]
     Indication: CONVULSION
     Dosage: UNK
     Route: 048
     Dates: end: 20060101
  2. DILATREND [Concomitant]
     Dosage: 25 MG PER DAY
  3. COAPROVEL [Concomitant]
     Dosage: 300 MG PER DAY
  4. NORVASC [Concomitant]
     Dosage: 10MG PER DAY
  5. LEVOTHYROXINE SODIUM [Concomitant]
     Dosage: 100 MG PER DAY

REACTIONS (1)
  - FISTULA REPAIR [None]
